FAERS Safety Report 18959597 (Version 3)
Quarter: 2021Q1

REPORT INFORMATION
  Report Type: Spontaneous
  Country: MX (occurrence: MX)
  Receive Date: 20210302
  Receipt Date: 20210311
  Transmission Date: 20210420
  Serious: Yes (Death, Other)
  Sender: FDA-Public Use
  Company Number: MX-PFIZER INC-2021195002

PATIENT
  Age: 43 Year
  Sex: Male

DRUGS (4)
  1. AZITHROMYCIN ANHYDROUS. [Suspect]
     Active Substance: AZITHROMYCIN ANHYDROUS
     Indication: COVID-19
     Dosage: 500 MG, DAILY (DAY 1)
     Route: 048
  2. CHLOROQUINE. [Suspect]
     Active Substance: CHLOROQUINE
     Dosage: 500 MG, DAILY (500 MG TWICE ON DAY 1, THEN 500 MG DAILY ON DAYS 2?5)
     Route: 048
  3. CHLOROQUINE. [Suspect]
     Active Substance: CHLOROQUINE
     Indication: COVID-19
     Dosage: 500 MG, 2X/DAY ( 500 MG TWICE ON DAY 1, THEN 500 MG DAILY ON DAYS 2?5)
     Route: 048
  4. AZITHROMYCIN ANHYDROUS. [Suspect]
     Active Substance: AZITHROMYCIN ANHYDROUS
     Dosage: 250 MG, DAILY (250 MG DAILY ON DAYS 2?5)
     Route: 048

REACTIONS (3)
  - Off label use [Fatal]
  - Tachycardia [Fatal]
  - Cardiac arrest [Fatal]
